FAERS Safety Report 7758556-7 (Version None)
Quarter: 2011Q3

REPORT INFORMATION
  Report Type: 
  Country: None (occurrence: None)
  Receive Date: 20110919
  Receipt Date: 20110907
  Transmission Date: 20111222
  Serious: Yes (Death, Other)
  Sender: FDA-Public Use
  Company Number: DK-ELI_LILLY_AND_COMPANY-DK201109003502

PATIENT
  Sex: Male
  Weight: 97 kg

DRUGS (6)
  1. OXAZEPAM [Concomitant]
     Dosage: UNK
     Dates: start: 20060101, end: 20101101
  2. DIAZEPAM [Concomitant]
  3. LYRICA [Concomitant]
     Indication: DEPRESSION
     Dosage: UNK
     Dates: start: 20101201
  4. VENLAFAXINE HYDROCHLORIDE [Concomitant]
  5. MORPHINE [Concomitant]
  6. ZYPREXA [Suspect]
     Indication: DEPRESSION SUICIDAL
     Dosage: 20 MG, BID
     Route: 048
     Dates: start: 20101122

REACTIONS (9)
  - ARRHYTHMIA [None]
  - TOXICITY TO VARIOUS AGENTS [None]
  - OVERDOSE [None]
  - EOSINOPHILIC MYOCARDITIS [None]
  - CARDIOMEGALY [None]
  - BRONCHITIS CHRONIC [None]
  - OFF LABEL USE [None]
  - EMPHYSEMA [None]
  - HYPERSENSITIVITY [None]
